FAERS Safety Report 8457104-6 (Version None)
Quarter: 2012Q2

REPORT INFORMATION
  Report Type: 
  Country: None (occurrence: None)
  Receive Date: 20120621
  Receipt Date: 20120620
  Transmission Date: 20120825
  Serious: Yes (Death)
  Sender: FDA-Public Use
  Company Number: US-CELGENEUS-163-21880-12062901

PATIENT
  Sex: Female
  Weight: 57.204 kg

DRUGS (6)
  1. VICODIN [Concomitant]
     Dosage: 5-500MG
     Route: 065
  2. ZOFRAN [Concomitant]
     Dosage: 4 MILLIGRAM
     Route: 065
  3. TRAZODONE HCL [Concomitant]
     Dosage: 150 MILLIGRAM
     Route: 065
  4. REVLIMID [Suspect]
     Indication: MULTIPLE MYELOMA
     Dosage: 2.5 MILLIGRAM
     Route: 048
     Dates: start: 20110803, end: 20120430
  5. XANAX [Concomitant]
     Dosage: 1 MILLIGRAM
     Route: 065
  6. ADALAT [Concomitant]
     Dosage: 30 MILLIGRAM
     Route: 065

REACTIONS (1)
  - DEATH [None]
